FAERS Safety Report 6233362-3 (Version None)
Quarter: 2009Q2

REPORT INFORMATION
  Report Type: 
  Country: None (occurrence: None)
  Receive Date: 20090616
  Receipt Date: 20090616
  Transmission Date: 20091009
  Serious: No
  Sender: FDA-Public Use
  Company Number: None

PATIENT
  Age: 49 Year
  Sex: Female
  Weight: 58.9676 kg

DRUGS (2)
  1. RECLAST [Suspect]
     Indication: OSTEOPENIA
     Dosage: ANNUAL INTRAVESICA
     Route: 043
     Dates: start: 20071101, end: 20071101
  2. RECLAST [Suspect]
     Indication: OSTEOPENIA
     Dosage: ANNUAL INTRAVESICA
     Route: 043
     Dates: start: 20081120, end: 20081120

REACTIONS (5)
  - BACK PAIN [None]
  - EYE INFLAMMATION [None]
  - MUSCULOSKELETAL PAIN [None]
  - PAIN IN EXTREMITY [None]
  - PAIN IN JAW [None]
